FAERS Safety Report 24173231 (Version 1)
Quarter: 2024Q3

REPORT INFORMATION
  Report Type: Spontaneous
  Country: CA (occurrence: CA)
  Receive Date: 20240805
  Receipt Date: 20240805
  Transmission Date: 20241017
  Serious: Yes (Other)
  Sender: SANDOZ
  Company Number: CA-002147023-NVSC2024CA151739

PATIENT
  Age: 61 Year
  Sex: Male

DRUGS (2)
  1. MAXIDEX [Suspect]
     Active Substance: DEXAMETHASONE
     Indication: Eye infection
     Dosage: UNK
     Route: 065
  2. TOBRADEX [Suspect]
     Active Substance: DEXAMETHASONE\TOBRAMYCIN
     Indication: Eye infection
     Dosage: UNK, EYE DROPS, SUSPENSION
     Route: 065

REACTIONS (3)
  - Optic nerve injury [Unknown]
  - Eye pain [Unknown]
  - Product dispensing error [Unknown]
